FAERS Safety Report 5199671-4 (Version None)
Quarter: 2007Q1

REPORT INFORMATION
  Report Type: 
  Country: None (occurrence: None)
  Receive Date: 20070103
  Receipt Date: 20070103
  Transmission Date: 20070707
  Serious: Yes (Other)
  Sender: FDA-Public Use
  Company Number: None

PATIENT
  Age: 28 Year
  Sex: Male
  Weight: 74 kg

DRUGS (3)
  1. IMATINIB MESYLATE [Suspect]
     Indication: HYPEREOSINOPHILIC SYNDROME
     Dosage: 100MG  DAILY  PO
     Route: 048
     Dates: start: 20061117, end: 20061122
  2. IMATINIB MESYLATE [Suspect]
     Indication: HYPEREOSINOPHILIC SYNDROME
     Dosage: 100MG  DAILY  PO
     Route: 048
     Dates: start: 20061220, end: 20061225
  3. GLEEVEC [Concomitant]

REACTIONS (7)
  - AGITATION [None]
  - HALLUCINATION, AUDITORY [None]
  - HALLUCINATION, VISUAL [None]
  - MANIA [None]
  - NEUTROPENIA [None]
  - PARANOIA [None]
  - PSYCHOTIC DISORDER [None]
